FAERS Safety Report 4562373-9 (Version None)
Quarter: 2005Q1

REPORT INFORMATION
  Report Type: 
  Country: None (occurrence: None)
  Receive Date: 20050127
  Receipt Date: 20050121
  Transmission Date: 20050727
  Serious: Yes (Hospitalization)
  Sender: FDA-Public Use
  Company Number: 200510613GDDC

PATIENT
  Age: 75 Year
  Sex: Male

DRUGS (9)
  1. MINIRIN [Suspect]
     Indication: NOCTURIA
     Route: 048
     Dates: start: 20041115, end: 20041101
  2. AMIODARONE HYDROCHLORIDE [Concomitant]
     Dosage: DOSE: UNK
     Route: 048
  3. TICLOPIDINE HCL [Concomitant]
     Dosage: DOSE: UNK
     Route: 048
  4. DILTIAZEM HYDROCHLORIDE [Concomitant]
     Dosage: DOSE: UNK
     Route: 048
  5. BUFLOMEDIL HYDROCHLORIDE [Concomitant]
     Dosage: DOSE: UNK
     Route: 048
  6. RANITIDINE [Concomitant]
     Dosage: DOSE: UNK
     Route: 048
  7. QUINAPRIL HYDROCHLORIDE AND HYDROCHLOROTHIAZDE [Concomitant]
     Dosage: DOSE: UNK
     Route: 048
  8. NITROGLYCERIN [Concomitant]
     Dosage: DOSE: UNK
     Route: 062
  9. PRAVASTATIN SODIUM [Concomitant]
     Dosage: DOSE: UNK
     Route: 048

REACTIONS (2)
  - HYPONATRAEMIA [None]
  - MALAISE [None]
